FAERS Safety Report 21509066 (Version 1)
Quarter: 2022Q4

REPORT INFORMATION
  Report Type: Report from Study
  Country: CN (occurrence: CN)
  Receive Date: 20221026
  Receipt Date: 20221026
  Transmission Date: 20230113
  Serious: Yes (Other)
  Sender: FDA-Public Use
  Company Number: CN-TAKEDA-2021TUS028223

PATIENT
  Age: 62 Year
  Sex: Male
  Weight: 78.5 kg

DRUGS (33)
  1. IXAZOMIB [Suspect]
     Active Substance: IXAZOMIB
     Indication: Plasma cell myeloma
     Dosage: 4 MILLIGRAM
     Route: 048
     Dates: start: 20210201, end: 20210215
  2. DEXAMETHASONE [Suspect]
     Active Substance: DEXAMETHASONE
     Indication: Plasma cell myeloma
     Dosage: 20 MILLIGRAM
     Route: 048
     Dates: start: 20210201
  3. DEXAMETHASONE SODIUM PHOSPHATE [Suspect]
     Active Substance: DEXAMETHASONE SODIUM PHOSPHATE
     Indication: Plasma cell myeloma
     Dosage: 20 MILLIGRAM
     Route: 042
     Dates: start: 20210201, end: 20210220
  4. DEXAMETHASONE SODIUM PHOSPHATE [Suspect]
     Active Substance: DEXAMETHASONE SODIUM PHOSPHATE
     Dosage: 20 MILLIGRAM
     Route: 042
     Dates: start: 20210306, end: 20210328
  5. DARATUMUMAB [Suspect]
     Active Substance: DARATUMUMAB
     Indication: Plasma cell myeloma
     Dosage: 1300 MILLIGRAM, Q4WEEKS
     Route: 030
     Dates: start: 20210306, end: 20210328
  6. NIFEDIPINE [Concomitant]
     Active Substance: NIFEDIPINE
     Indication: Hypertension
     Dosage: 30 MILLIGRAM, QD
     Route: 048
     Dates: start: 2003
  7. INSULIN GLARGINE [Concomitant]
     Active Substance: INSULIN GLARGINE
     Indication: Type 2 diabetes mellitus
     Dosage: UNK UNK, QD
     Route: 025
     Dates: start: 2001
  8. ACARBOSE [Concomitant]
     Active Substance: ACARBOSE
     Indication: Type 2 diabetes mellitus
     Dosage: 50 MILLIGRAM, TID
     Route: 048
     Dates: start: 2001
  9. METFORMIN HYDROCHLORIDE [Concomitant]
     Active Substance: METFORMIN HYDROCHLORIDE
     Indication: Type 2 diabetes mellitus
     Dosage: 0.2 GRAM, TID
     Route: 048
     Dates: start: 2001
  10. VORICONAZOLE [Concomitant]
     Active Substance: VORICONAZOLE
     Indication: Pneumonia
     Dosage: 200 MILLIGRAM
     Route: 048
     Dates: start: 20210123
  11. CALCIUM CARBONATE\CHOLECALCIFEROL [Concomitant]
     Active Substance: CALCIUM CARBONATE\CHOLECALCIFEROL
     Indication: Mineral supplementation
     Dosage: 0.6 GRAM, BID
     Route: 048
     Dates: start: 20210202
  12. CALCITRIOL [Concomitant]
     Active Substance: CALCITRIOL
     Indication: Mineral supplementation
     Dosage: 0.25 MICROGRAM, QD
     Route: 048
     Dates: start: 20210202
  13. RIVAROXABAN [Concomitant]
     Active Substance: RIVAROXABAN
     Indication: Prophylaxis
     Dosage: 20 MILLIGRAM, QD
     Route: 048
     Dates: start: 20210128
  14. CARBAZOCHROME [Concomitant]
     Active Substance: CARBAZOCHROME
     Indication: Haemostasis
     Dosage: 2.5 MILLIGRAM, TID
     Route: 048
     Dates: start: 20210123
  15. POTASSIUM CHLORIDE [Concomitant]
     Active Substance: POTASSIUM CHLORIDE
     Indication: Mineral supplementation
     Dosage: 2 GRAM, BID
     Route: 048
     Dates: start: 20210204
  16. COMPOUND EOSINOPHIL LACTOBACILLUS TABLETS [Concomitant]
     Indication: Bacterial infection
     Dosage: 1 GRAM, TID
     Route: 048
     Dates: start: 20210210
  17. POSACONAZOLE [Concomitant]
     Active Substance: POSACONAZOLE
     Indication: Infection prophylaxis
     Dosage: 5 MILLILITER, TID
     Route: 048
     Dates: start: 20210306
  18. METHYLCOBALAMIN [Concomitant]
     Active Substance: METHYLCOBALAMIN
     Indication: Supplementation therapy
     Dosage: 0.5 MILLIGRAM, TID
     Route: 048
     Dates: start: 20210322
  19. VITAMIN B12 [Concomitant]
     Active Substance: CYANOCOBALAMIN
     Indication: Supplementation therapy
     Dosage: UNK UNK, QD
     Route: 048
     Dates: start: 20210322
  20. SODIUM CARBONATE [Concomitant]
     Active Substance: SODIUM CARBONATE
     Indication: Urine alkalinisation therapy
     Dosage: 50 MILLILITER, QD
     Route: 030
     Dates: start: 20210313, end: 20210328
  21. TORSEMIDE [Concomitant]
     Active Substance: TORSEMIDE
     Indication: Infection prophylaxis
     Dosage: 10 MILLIGRAM, QD
     Route: 030
     Dates: start: 20210320, end: 20210327
  22. DIPHENHYDRAMINE HYDROCHLORIDE [Concomitant]
     Active Substance: DIPHENHYDRAMINE HYDROCHLORIDE
     Indication: Allergy prophylaxis
     Dosage: 20 MILLIGRAM
     Route: 030
     Dates: start: 20210313, end: 20210327
  23. MAGNESIUM ISOGLYCYRRHIZINATE [Concomitant]
     Active Substance: MAGNESIUM ISOGLYCYRRHIZINATE
     Indication: Prophylaxis
     Dosage: 200 MILLIGRAM
     Route: 030
     Dates: start: 20210306, end: 20210328
  24. LEVOCARNITINE [Concomitant]
     Active Substance: LEVOCARNITINE
     Indication: Prophylaxis
     Dosage: 5 MILLIGRAM
     Route: 030
     Dates: start: 20210320, end: 20210327
  25. TROPISETRON HYDROCHLORIDE [Concomitant]
     Active Substance: TROPISETRON HYDROCHLORIDE
     Indication: Antiemetic supportive care
     Dosage: 2 MILLILITER
     Route: 030
     Dates: start: 20210313, end: 20210327
  26. OMEPRAZOLE SODIUM [Concomitant]
     Active Substance: OMEPRAZOLE SODIUM
     Indication: Prophylaxis
     Dosage: 40 MILLIGRAM
     Route: 030
     Dates: start: 20210307, end: 20210328
  27. CREATINE [Concomitant]
     Active Substance: CREATINE
     Dosage: 1 GRAM
     Route: 030
     Dates: start: 20210306, end: 20210313
  28. AMIODARONE HYDROCHLORIDE [Concomitant]
     Active Substance: AMIODARONE HYDROCHLORIDE
     Indication: Atrial flutter
     Dosage: 0.15 GRAM
     Route: 030
     Dates: start: 20210320, end: 20210320
  29. COMPOUND PARACETAMOL [Concomitant]
     Indication: Analgesic therapy
     Dosage: UNK
     Route: 048
     Dates: start: 20210313, end: 20210313
  30. FOLIC ACID [Concomitant]
     Active Substance: FOLIC ACID
     Indication: Haematopoietic neoplasm
     Dosage: 10 MILLIGRAM, TID
     Route: 048
     Dates: start: 20210407
  31. ENTECAVIR [Concomitant]
     Active Substance: ENTECAVIR
     Indication: Antiviral prophylaxis
     Dosage: 0.5 MILLIGRAM, QD
     Route: 048
     Dates: start: 20210510
  32. FLUCONAZOLE [Concomitant]
     Active Substance: FLUCONAZOLE
     Indication: Antiviral prophylaxis
     Dosage: 150 MILLIGRAM, QD
     Route: 048
     Dates: start: 20210708
  33. FAMCICLOVIR [Concomitant]
     Active Substance: FAMCICLOVIR
     Indication: Antiviral prophylaxis
     Dosage: 0.25 GRAM, TID
     Route: 048
     Dates: start: 20210927

REACTIONS (4)
  - Hypokalaemia [Recovered/Resolved]
  - Hypoproteinaemia [Not Recovered/Not Resolved]
  - Hyperlipidaemia [Unknown]
  - Off label use [Unknown]

NARRATIVE: CASE EVENT DATE: 20210201
